FAERS Safety Report 10254059 (Version 1)
Quarter: 2014Q2

REPORT INFORMATION
  Report Type: Spontaneous
  Country: GB (occurrence: GB)
  Receive Date: 20140623
  Receipt Date: 20140623
  Transmission Date: 20141212
  Serious: Yes (Life-Threatening, Hospitalization)
  Sender: FDA-Public Use
  Company Number: GB-MYLANLABS-2014S1013886

PATIENT
  Sex: 0

DRUGS (11)
  1. AZATHIOPRINE [Suspect]
     Indication: LUPUS NEPHRITIS
     Route: 048
     Dates: start: 1992
  2. ALLOPURINOL [Suspect]
     Indication: GOUT
     Route: 048
     Dates: start: 20140511
  3. ALFACALCIDOL [Concomitant]
  4. BUDESONIDE [Concomitant]
  5. DIGOXIN [Concomitant]
  6. FUROSEMIDE [Concomitant]
  7. LISINOPRIL [Concomitant]
  8. PREDNISOLONE [Concomitant]
     Indication: LYMPHANGIOLEIOMYOMATOSIS
  9. SALBUTAMOL [Concomitant]
  10. SECURON SR [Concomitant]
  11. WARFARIN SODIUM [Concomitant]

REACTIONS (6)
  - Septic shock [Recovering/Resolving]
  - Thrombocytopenia [Recovering/Resolving]
  - Malaise [Unknown]
  - Pyrexia [Unknown]
  - Renal failure [Unknown]
  - Drug interaction [Unknown]
